FAERS Safety Report 5885031-7 (Version None)
Quarter: 2008Q3

REPORT INFORMATION
  Report Type: 
  Country: None (occurrence: None)
  Receive Date: 20080916
  Receipt Date: 20080910
  Transmission Date: 20090109
  Serious: Yes (Other)
  Sender: FDA-Public Use
  Company Number: US-BAYER-200812619BCC

PATIENT
  Age: 12 Year
  Sex: Female

DRUGS (3)
  1. RID LICE KILLING SHAMPOO + CONDITIONER [Suspect]
     Indication: LICE INFESTATION
     Route: 061
     Dates: start: 20080618, end: 20080618
  2. ALLERGY MEDICATION [Concomitant]
  3. ALBUTEROL [Concomitant]
     Route: 055

REACTIONS (3)
  - ASTHMA [None]
  - DYSPNOEA [None]
  - PANIC REACTION [None]
